FAERS Safety Report 4352495-X (Version None)
Quarter: 2004Q2

REPORT INFORMATION
  Report Type: 
  Country: None (occurrence: None)
  Receive Date: 20040428
  Receipt Date: 20040417
  Transmission Date: 20050107
  Serious: Yes (Life-Threatening, Hospitalization, Other)
  Sender: FDA-Public Use
  Company Number: 2003JP006781

PATIENT
  Age: 16 Year
  Sex: Female
  Weight: 38 kg

DRUGS (13)
  1. PROTOPIC [Suspect]
     Dosage: SEE IMAGE
     Route: 061
     Dates: start: 20000711, end: 20000824
  2. PROTOPIC [Suspect]
     Dosage: SEE IMAGE
     Route: 061
     Dates: start: 20000825, end: 20021201
  3. PROTOPIC [Suspect]
     Dosage: SEE IMAGE
     Route: 061
     Dates: start: 20030515, end: 20030801
  4. NEORAL [Suspect]
     Dosage: SEE IMAGE
     Route: 048
     Dates: start: 20030605, end: 20030610
  5. NEORAL [Suspect]
     Dosage: SEE IMAGE
     Route: 048
     Dates: start: 20030611, end: 20030703
  6. NEORAL [Suspect]
     Dosage: SEE IMAGE
     Route: 048
     Dates: start: 20030807, end: 20030801
  7. NEORAL [Suspect]
     Dosage: SEE IMAGE
     Route: 048
     Dates: start: 20030704, end: 20030806
  8. IPD [Concomitant]
  9. NERISNA (DIFLUCORTOLONE VALERATE) [Concomitant]
  10. FULMETA (MOMETASONE FUROATE) [Concomitant]
  11. MYCOSTATIN [Concomitant]
  12. MIYA-BM [Concomitant]
  13. PREDNISOLONE [Concomitant]

REACTIONS (22)
  - ADRENAL INSUFFICIENCY [None]
  - ALOPECIA [None]
  - ANAEMIA [None]
  - APPLICATION SITE BURNING [None]
  - BIOPSY BONE MARROW ABNORMAL [None]
  - BLOOD IMMUNOGLOBULIN E INCREASED [None]
  - BLOOD LACTATE DEHYDROGENASE INCREASED [None]
  - DERMATITIS [None]
  - DYSPNOEA [None]
  - EPSTEIN-BARR VIRUS ANTIBODY POSITIVE [None]
  - HYPOPITUITARISM [None]
  - HYPOTHALAMO-PITUITARY DISORDERS [None]
  - LYMPHADENOPATHY [None]
  - LYMPHOCYTE COUNT INCREASED [None]
  - LYMPHOCYTE MORPHOLOGY ABNORMAL [None]
  - METRORRHAGIA [None]
  - MYCOSIS FUNGOIDES [None]
  - PIGMENTATION DISORDER [None]
  - PLATELET COUNT INCREASED [None]
  - PRURITUS [None]
  - PYREXIA [None]
  - WHITE BLOOD CELL COUNT INCREASED [None]
